FAERS Safety Report 20350738 (Version 1)
Quarter: 2022Q1

REPORT INFORMATION
  Report Type: Spontaneous
  Country: US (occurrence: US)
  Receive Date: 20220119
  Receipt Date: 20220119
  Transmission Date: 20220423
  Serious: Yes (Other)
  Sender: FDA-Public Use
  Company Number: US-SA-SAC20220118000410

PATIENT
  Sex: Female

DRUGS (26)
  1. DUPIXENT [Suspect]
     Active Substance: DUPILUMAB
     Indication: Selective IgA immunodeficiency
     Dosage: 300MG QOW
     Route: 058
  2. DUPIXENT [Suspect]
     Active Substance: DUPILUMAB
     Indication: Adrenocortical insufficiency acute
  3. DUPIXENT [Suspect]
     Active Substance: DUPILUMAB
     Indication: Gastrooesophageal reflux disease
  4. DUPIXENT [Suspect]
     Active Substance: DUPILUMAB
     Indication: Essential hypertension
  5. DUPIXENT [Suspect]
     Active Substance: DUPILUMAB
     Indication: Asthma
  6. DUPIXENT [Suspect]
     Active Substance: DUPILUMAB
     Indication: Migraine
  7. DUPIXENT [Suspect]
     Active Substance: DUPILUMAB
     Indication: Immunodeficiency
  8. HIZENTRA [Concomitant]
     Active Substance: HUMAN IMMUNOGLOBULIN G
  9. BOTOX [Concomitant]
     Active Substance: ONABOTULINUMTOXINA
  10. SIMBRINZA [Concomitant]
     Active Substance: BRIMONIDINE TARTRATE\BRINZOLAMIDE
  11. XIIDRA [Concomitant]
     Active Substance: LIFITEGRAST
  12. HYDROXYCHLOROQUINE SULFATE [Concomitant]
     Active Substance: HYDROXYCHLOROQUINE SULFATE
  13. ATORVASTATIN [Concomitant]
     Active Substance: ATORVASTATIN
  14. CABERGOLINE [Concomitant]
     Active Substance: CABERGOLINE
  15. TRELEGY ELLIPTA [Concomitant]
     Active Substance: FLUTICASONE FUROATE\UMECLIDINIUM BROMIDE\VILANTEROL TRIFENATATE
  16. LATANOPROST [Concomitant]
     Active Substance: LATANOPROST
  17. FAMOTIDINE [Concomitant]
     Active Substance: FAMOTIDINE
  18. OLOPATADINE [Concomitant]
     Active Substance: OLOPATADINE
  19. MONTELUKAST [Concomitant]
     Active Substance: MONTELUKAST SODIUM
  20. RAMIPRIL [Concomitant]
     Active Substance: RAMIPRIL
  21. AMLODIPINE BESYLATE [Concomitant]
     Active Substance: AMLODIPINE BESYLATE
  22. ALLEGRA [FEXOFENADINE HYDROCHLORIDE] [Concomitant]
  23. HYDROCORTISONE [Concomitant]
     Active Substance: HYDROCORTISONE
  24. PROAIR HFA [Concomitant]
     Active Substance: ALBUTEROL SULFATE
  25. DEXILANT [Concomitant]
     Active Substance: DEXLANSOPRAZOLE
  26. KLOR-CON [Concomitant]
     Active Substance: POTASSIUM CHLORIDE

REACTIONS (5)
  - Pneumonia [Unknown]
  - Sepsis [Unknown]
  - Coagulopathy [Unknown]
  - Thrombosis [Unknown]
  - Product use in unapproved indication [Unknown]
